FAERS Safety Report 9140488 (Version 1)
Quarter: 2013Q1

REPORT INFORMATION
  Report Type: Spontaneous
  Country: US (occurrence: None)
  Receive Date: 20130205
  Receipt Date: 20130205
  Transmission Date: 20140127
  Serious: Yes (Death)
  Sender: FDA-Public Use
  Company Number: IMP_06204_2013

PATIENT
  Age: 63 Year
  Sex: Male

DRUGS (7)
  1. BUPROPION [Suspect]
     Indication: PRODUCT USED FOR UNKNOWN INDICATION
     Dosage: DF ORAL
     Route: 048
  2. VERAPAMIL [Suspect]
     Dosage: DF ORAL
  3. MIRTAZAPINE [Suspect]
     Dosage: DF ORAL
     Route: 048
  4. VALPROIC ACID [Suspect]
     Dosage: DF ORAL
     Route: 048
  5. TOLTERODINE [Suspect]
     Dosage: DF ORAL
     Route: 048
  6. TAMSULOSIN [Suspect]
     Dosage: DF ORAL
     Route: 048
  7. ZOLPIDEM [Suspect]
     Dosage: DF ORAL

REACTIONS (2)
  - Poisoning [None]
  - Completed suicide [None]
